FAERS Safety Report 8214370-X (Version None)
Quarter: 2012Q1

REPORT INFORMATION
  Report Type: 
  Country: None (occurrence: None)
  Receive Date: 20120316
  Receipt Date: 20120308
  Transmission Date: 20120608
  Serious: Yes (Other)
  Sender: FDA-Public Use
  Company Number: CA-JNJFOC-20120304693

PATIENT
  Sex: Female
  Weight: 83 kg

DRUGS (3)
  1. SIMPONI [Suspect]
     Indication: RHEUMATOID ARTHRITIS
     Dosage: 6 DOSES TOTAL
     Dates: start: 20120215
  2. IBUPROFEN (ADVIL) [Concomitant]
  3. CORTISONE ACETATE [Concomitant]
     Route: 050

REACTIONS (2)
  - INAPPROPRIATE SCHEDULE OF DRUG ADMINISTRATION [None]
  - SINUSITIS [None]
